FAERS Safety Report 7945874-2 (Version None)
Quarter: 2011Q4

REPORT INFORMATION
  Report Type: 
  Country: None (occurrence: None)
  Receive Date: 20111125
  Receipt Date: 20111110
  Transmission Date: 20120403
  Serious: Yes (Hospitalization)
  Sender: FDA-Public Use
  Company Number: 1000025100

PATIENT
  Age: 87 Year
  Sex: Female

DRUGS (7)
  1. MEMANTINE HYDROCHLORIDE [Suspect]
     Indication: DEMENTIA ALZHEIMER'S TYPE
     Dosage: 5 MG (5 MG, 1 IN 1 D) ORAL
     Route: 048
     Dates: start: 20110728, end: 20110804
  2. ADALAT (NIFEDIPINE) (NIFEDIPINE) [Concomitant]
  3. BUP-4 (PROPIVERINE HYDROCHLORIDE) (PROPIVERINE HYDROCHLORIDE) [Concomitant]
  4. DIOVAN [Concomitant]
  5. MEMANTINE HYDROCHLORIDE [Suspect]
     Indication: DEMENTIA ALZHEIMER'S TYPE
     Dosage: 20 MG (20 MG, 1 IN 1 D) ORAL
     Route: 048
     Dates: start: 20110826, end: 20111017
  6. YOKIKAN-SAN (HERBAL EXTRACT NOS) (HERBAL EXTRACT NOS) [Suspect]
  7. LIPITOR [Concomitant]

REACTIONS (9)
  - PNEUMONIA [None]
  - HAEMATOCRIT DECREASED [None]
  - HAEMOGLOBIN DECREASED [None]
  - LYMPHOCYTE PERCENTAGE DECREASED [None]
  - OEDEMA PERIPHERAL [None]
  - PYREXIA [None]
  - RED BLOOD CELL COUNT DECREASED [None]
  - BLOOD POTASSIUM DECREASED [None]
  - COUGH [None]
